FAERS Safety Report 5015485-X (Version None)
Quarter: 2006Q2

REPORT INFORMATION
  Report Type: 
  Country: None (occurrence: None)
  Receive Date: 20060530
  Receipt Date: 20060530
  Transmission Date: 20061013
  Serious: Yes (Other)
  Sender: FDA-Public Use
  Company Number: None

PATIENT
  Age: 51 Year
  Sex: Male
  Weight: 64.4 kg

DRUGS (6)
  1. VARDENAFIL [Suspect]
  2. ATAZANAVIR SO4 [Concomitant]
  3. HYDROCHLOROTHIAZIDE [Concomitant]
  4. RITONAVIR [Concomitant]
  5. LISINOPRIL [Concomitant]
  6. MULTI-VITAMIN [Concomitant]

REACTIONS (1)
  - HYPOTENSION [None]
